FAERS Safety Report 9100579 (Version 2)
Quarter: 2013Q2

REPORT INFORMATION
  Report Type: Report from Study
  Country: US (occurrence: US)
  Receive Date: 20130214
  Receipt Date: 20130506
  Transmission Date: 20140414
  Serious: Yes (Hospitalization)
  Sender: FDA-Public Use
  Company Number: PHEH2013US003578

PATIENT
  Age: 55 Year
  Sex: Female
  Weight: 74.38 kg

DRUGS (13)
  1. TOBI [Suspect]
     Indication: BRONCHIECTASIS
     Dosage: 300 MG / 5 ML, TWICE A DAY
     Dates: start: 20120724
  2. TRIMETHOPRIM SULFAMETHOXAZOLE [Concomitant]
     Dosage: UNK
  3. ABILIFY [Concomitant]
     Dosage: UNK
  4. COREG [Concomitant]
     Dosage: UNK
  5. FISH OIL [Concomitant]
     Dosage: UNK
  6. FLUOXETINE [Concomitant]
     Dosage: UNK
  7. LAMOTRIGINE [Concomitant]
     Dosage: UNK
  8. LASIX [Concomitant]
     Dosage: UNK
  9. LEFLUNOMIDE [Concomitant]
     Dosage: UNK
  10. LISINOPRIL + HIDROCLOROTIAZIDA [Concomitant]
     Dosage: UNK
  11. TRAMADOL [Concomitant]
     Dosage: UNK
  12. WARFARIN [Concomitant]
     Dosage: UNK
  13. WELLBUTRIN SR [Concomitant]
     Dosage: UNK

REACTIONS (8)
  - Cardiac disorder [Unknown]
  - Hypertrophic cardiomyopathy [Recovered/Resolved]
  - Chest pain [Recovered/Resolved]
  - Dizziness [Recovered/Resolved]
  - Dyspnoea [Recovered/Resolved]
  - Cardiac failure congestive [Recovered/Resolved]
  - Nausea [Recovered/Resolved]
  - Vomiting [Recovered/Resolved]
